FAERS Safety Report 7400574-2 (Version None)
Quarter: 2011Q2

REPORT INFORMATION
  Report Type: 
  Country: None (occurrence: None)
  Receive Date: 20110407
  Receipt Date: 20110331
  Transmission Date: 20111010
  Serious: Yes (Other)
  Sender: FDA-Public Use
  Company Number: JP-PFIZER INC-2011042290

PATIENT
  Age: 52 Year
  Sex: Female
  Weight: 62 kg

DRUGS (1)
  1. AROMASIN [Suspect]
     Indication: BREAST CANCER FEMALE
     Dosage: 25 MG, 1X/DAY
     Route: 048
     Dates: start: 20100101

REACTIONS (5)
  - MUSCULOSKELETAL STIFFNESS [None]
  - ANGIOEDEMA [None]
  - ARTHRALGIA [None]
  - TRIGGER FINGER [None]
  - JOINT EFFUSION [None]
